FAERS Safety Report 9833925 (Version 1)
Quarter: 2014Q1

REPORT INFORMATION
  Report Type: Spontaneous
  Country: US (occurrence: US)
  Receive Date: 20140122
  Receipt Date: 20140122
  Transmission Date: 20141002
  Serious: No
  Sender: FDA-Public Use
  Company Number: US-BIOGENIDEC-2014BI005725

PATIENT
  Sex: Female

DRUGS (14)
  1. TECFIDERA [Suspect]
     Indication: MULTIPLE SCLEROSIS
     Route: 048
     Dates: start: 20131123
  2. AMOXICILLIN [Concomitant]
  3. BACTRIM [Concomitant]
  4. HYDROCODONE [Concomitant]
  5. IMITREX [Concomitant]
  6. METHOTREXATE [Concomitant]
  7. METOPROLOL SUCCINATE [Concomitant]
  8. NEXIUM [Concomitant]
  9. NITROFURANTOIN [Concomitant]
  10. SERTRALINE [Concomitant]
  11. SYNTHROID [Concomitant]
  12. TRICOR [Concomitant]
  13. VITAMIN C [Concomitant]
  14. VITAMIN D [Concomitant]

REACTIONS (3)
  - Fatigue [Unknown]
  - Dyspepsia [Unknown]
  - Diarrhoea [Unknown]
